FAERS Safety Report 9148302 (Version 1)
Quarter: 2013Q1

REPORT INFORMATION
  Report Type: Spontaneous
  Country: US (occurrence: None)
  Receive Date: 20130228
  Receipt Date: 20130228
  Transmission Date: 20140127
  Serious: Yes (Disabling)
  Sender: FDA-Public Use
  Company Number: None

PATIENT
  Age: 63 Year
  Sex: Female
  Weight: 126 kg

DRUGS (10)
  1. GABAPENTIN 300 MG [Suspect]
     Indication: NEUROPATHY PERIPHERAL
     Route: 048
  2. ACETAMINOPHEN-TYLENOL EXTRA STRENGTH [Concomitant]
  3. ALBUTEROL-PROAIR HFA- [Concomitant]
  4. ALLOPURINOL-ZYLOPRIM-EQUIVALENT [Concomitant]
  5. AMLODIPINE -NORVASC- [Concomitant]
  6. CALCITRIOL -ROCALTROL-EQUIVALENT [Concomitant]
  7. CALCIUM ACETATE -PHOSLO- [Concomitant]
  8. CLONAZEPAM -KLONOPIN- [Concomitant]
  9. BLOOD SUGAR DIAGNOSTIC-FREESTYLE LITE STRIPS [Concomitant]
  10. BLOOD GLUCOSE METER-FREESTYLE FREEDOM LITE KIT [Concomitant]

REACTIONS (3)
  - Renal impairment [None]
  - Haemodialysis [None]
  - Tremor [None]
